FAERS Safety Report 25498597 (Version 1)
Quarter: 2025Q3

REPORT INFORMATION
  Report Type: Report from Study
  Country: US (occurrence: US)
  Receive Date: 20250701
  Receipt Date: 20250701
  Transmission Date: 20251021
  Serious: Yes (Other)
  Sender: ABBVIE
  Company Number: US-ABBVIE-6347846

PATIENT
  Sex: Female

DRUGS (1)
  1. HUMIRA [Suspect]
     Active Substance: ADALIMUMAB
     Indication: Product used for unknown indication
     Route: 058

REACTIONS (10)
  - Loss of consciousness [Recovering/Resolving]
  - Anxiety [Recovering/Resolving]
  - Feeling hot [Recovering/Resolving]
  - Mental disorder [Recovering/Resolving]
  - Lower respiratory tract infection [Recovering/Resolving]
  - Needle issue [Recovering/Resolving]
  - Movement disorder [Recovering/Resolving]
  - Amnesia [Recovering/Resolving]
  - Cough [Recovering/Resolving]
  - Drug ineffective [Recovering/Resolving]
